FAERS Safety Report 19745173 (Version 1)
Quarter: 2021Q3

REPORT INFORMATION
  Report Type: Spontaneous
  Country: CA (occurrence: CA)
  Receive Date: 20210825
  Receipt Date: 20210825
  Transmission Date: 20211014
  Serious: Yes (Other)
  Sender: FDA-Public Use
  Company Number: CA-PFIZER INC-202101035242

PATIENT

DRUGS (5)
  1. TOFACITINIB [Suspect]
     Active Substance: TOFACITINIB
     Dosage: 5 MG, 2 EVERY 1 DAYS
     Route: 065
  2. TOFACITINIB [Suspect]
     Active Substance: TOFACITINIB
     Dosage: 11 MG, 1 EVERY 1 DAYS
     Route: 065
  3. LEFLUNOMIDE. [Concomitant]
     Active Substance: LEFLUNOMIDE
  4. METHOTREXATE. [Concomitant]
     Active Substance: METHOTREXATE
     Route: 037
  5. ABT?494 [Suspect]
     Active Substance: UPADACITINIB
     Indication: RHEUMATOID ARTHRITIS
     Dosage: 15 MG, 1 EVERY 1 DAYS
     Route: 048

REACTIONS (8)
  - Drug ineffective [Unknown]
  - Rash [Unknown]
  - Cytopenia [Unknown]
  - Drug intolerance [Unknown]
  - Infection [Unknown]
  - Gastrointestinal disorder [Unknown]
  - Herpes simplex [Unknown]
  - Lymphopenia [Unknown]
